FAERS Safety Report 24445394 (Version 1)
Quarter: 2024Q4

REPORT INFORMATION
  Report Type: Spontaneous
  Country: US (occurrence: None)
  Receive Date: 20241015
  Receipt Date: 20241015
  Transmission Date: 20250114
  Serious: No
  Sender: Public
  Company Number: None

PATIENT
  Age: 34 Year
  Sex: Female

DRUGS (1)
  1. VRAYLAR [Suspect]
     Active Substance: CARIPRAZINE
     Indication: Major depression
     Dosage: FREQUENCY : DAILY;?
     Route: 048
     Dates: start: 20230501, end: 20240601

REACTIONS (5)
  - Akathisia [None]
  - Insomnia [None]
  - Restlessness [None]
  - Nausea [None]
  - Restless legs syndrome [None]

NARRATIVE: CASE EVENT DATE: 20230522
